FAERS Safety Report 8188129-6 (Version None)
Quarter: 2012Q1

REPORT INFORMATION
  Report Type: 
  Country: None (occurrence: None)
  Receive Date: 20120306
  Receipt Date: 20120227
  Transmission Date: 20120608
  Serious: Yes (Other)
  Sender: FDA-Public Use
  Company Number: US-BAYER-2011-122141

PATIENT
  Age: 57 Year
  Sex: Female

DRUGS (5)
  1. PROZAC [Concomitant]
     Indication: STRESS
  2. PROZAC [Concomitant]
     Indication: ANXIETY
  3. YASMIN [Suspect]
     Indication: CONTRACEPTION
     Dosage: UNK
     Dates: start: 20030101, end: 20070101
  4. PROZAC [Concomitant]
     Indication: DEPRESSION
  5. ASPIRIN [Concomitant]

REACTIONS (2)
  - PAIN [None]
  - BRAIN STEM INFARCTION [None]
